FAERS Safety Report 4682491-4 (Version None)
Quarter: 2005Q2

REPORT INFORMATION
  Report Type: 
  Country: None (occurrence: None)
  Receive Date: 20050606
  Receipt Date: 20050524
  Transmission Date: 20051028
  Serious: Yes (Other)
  Sender: FDA-Public Use
  Company Number: US-ROCHE-405903

PATIENT
  Sex: Male

DRUGS (8)
  1. FUZEON [Suspect]
     Indication: DRUG USE FOR UNKNOWN INDICATION
     Route: 058
     Dates: start: 20030615, end: 20050523
  2. FUZEON [Suspect]
     Route: 058
     Dates: start: 20050524
  3. ACYCLOVIR [Concomitant]
     Route: 048
  4. LISINOPRIL [Concomitant]
     Route: 048
  5. METADONE [Concomitant]
     Route: 048
  6. OXYCODONE HCL [Concomitant]
     Route: 048
  7. MORPHINE [Concomitant]
  8. TEMAZEPAM [Concomitant]
     Indication: SOMNOLENCE

REACTIONS (16)
  - ANXIETY [None]
  - BLOOD PRESSURE INCREASED [None]
  - CHEST DISCOMFORT [None]
  - COLD SWEAT [None]
  - DIABETES MELLITUS [None]
  - DIZZINESS [None]
  - FEELING ABNORMAL [None]
  - HERNIA [None]
  - HODGKIN'S DISEASE [None]
  - HYPOTENSION [None]
  - INCORRECT DOSE ADMINISTERED [None]
  - LIPOHYPERTROPHY [None]
  - MEDICATION ERROR [None]
  - NEUROPATHY PERIPHERAL [None]
  - T-LYMPHOCYTE COUNT DECREASED [None]
  - VOMITING [None]
